FAERS Safety Report 6865529-5 (Version None)
Quarter: 2010Q3

REPORT INFORMATION
  Report Type: 
  Country: None (occurrence: None)
  Receive Date: 20100721
  Receipt Date: 20080423
  Transmission Date: 20110219
  Serious: No
  Sender: FDA-Public Use
  Company Number: US-PFIZER INC-2008037300

PATIENT
  Sex: Female
  Weight: 80 kg

DRUGS (6)
  1. CHANTIX [Suspect]
     Indication: SMOKING CESSATION THERAPY
     Route: 048
     Dates: start: 20080301
  2. METOPROLOL [Concomitant]
  3. CALCIUM [Concomitant]
  4. ALBUTEROL [Concomitant]
  5. ADVAIR DISKUS 100/50 [Concomitant]
  6. ADVIL LIQUI-GELS [Concomitant]

REACTIONS (4)
  - ABDOMINAL DISTENSION [None]
  - CONSTIPATION [None]
  - HEADACHE [None]
  - INSOMNIA [None]
